FAERS Safety Report 13706199 (Version 5)
Quarter: 2017Q3

REPORT INFORMATION
  Report Type: Report from Study
  Country: US (occurrence: US)
  Receive Date: 20170630
  Receipt Date: 20170823
  Transmission Date: 20171127
  Serious: Yes (Hospitalization)
  Sender: FDA-Public Use
  Company Number: US-JNJFOC-20161112638

PATIENT
  Age: 62 Year
  Sex: Female

DRUGS (12)
  1. CALCIUM [Concomitant]
     Active Substance: CALCIUM
  2. IMBRUVICA [Suspect]
     Active Substance: IBRUTINIB
     Indication: CHRONIC LYMPHOCYTIC LEUKAEMIA
     Route: 048
     Dates: start: 20151009
  3. IMBRUVICA [Suspect]
     Active Substance: IBRUTINIB
     Indication: CHRONIC LYMPHOCYTIC LEUKAEMIA
     Route: 048
     Dates: start: 20151015
  4. LEXAPRO [Concomitant]
     Active Substance: ESCITALOPRAM OXALATE
     Indication: ANXIETY
  5. ELIQUIS [Suspect]
     Active Substance: APIXABAN
     Indication: ATRIAL FIBRILLATION
     Dosage: DAILY
     Route: 065
  6. VITAMIN D3 [Concomitant]
     Active Substance: CHOLECALCIFEROL
  7. ELIQUIS [Suspect]
     Active Substance: APIXABAN
     Indication: ATRIAL FIBRILLATION
     Route: 065
  8. LEXAPRO [Concomitant]
     Active Substance: ESCITALOPRAM OXALATE
     Indication: DEPRESSION
  9. IMBRUVICA [Suspect]
     Active Substance: IBRUTINIB
     Indication: CHRONIC LYMPHOCYTIC LEUKAEMIA
     Route: 048
     Dates: start: 20151001
  10. SYNTHROID [Concomitant]
     Active Substance: LEVOTHYROXINE SODIUM
     Indication: HYPOTHYROIDISM
     Dosage: 50 MCG ONE DAY AND 75 MCG THE NEXT DAY ALTERNATING
  11. ASCORBIC ACID. [Concomitant]
     Active Substance: ASCORBIC ACID
  12. METAMUCIL [Concomitant]
     Active Substance: PLANTAGO SEED

REACTIONS (33)
  - Renal disorder [Unknown]
  - Nail growth abnormal [Not Recovered/Not Resolved]
  - Reflux laryngitis [Not Recovered/Not Resolved]
  - Gastroenteritis viral [Not Recovered/Not Resolved]
  - Dysphonia [Not Recovered/Not Resolved]
  - Liver function test abnormal [Not Recovered/Not Resolved]
  - Onychoclasis [Not Recovered/Not Resolved]
  - Throat irritation [Not Recovered/Not Resolved]
  - Antibody test abnormal [Not Recovered/Not Resolved]
  - Platelet count decreased [Not Recovered/Not Resolved]
  - Sinus disorder [Not Recovered/Not Resolved]
  - Weight increased [Not Recovered/Not Resolved]
  - Pharyngitis streptococcal [Recovered/Resolved]
  - Cough [Recovering/Resolving]
  - Protein total decreased [Not Recovered/Not Resolved]
  - Peripheral swelling [Not Recovered/Not Resolved]
  - Stomatitis [Recovered/Resolved]
  - Infection susceptibility increased [Not Recovered/Not Resolved]
  - Drug detoxification [Unknown]
  - Lymphoedema [Not Recovered/Not Resolved]
  - Fatigue [Not Recovered/Not Resolved]
  - Platelet count abnormal [Not Recovered/Not Resolved]
  - Bloody discharge [Not Recovered/Not Resolved]
  - Dizziness [Unknown]
  - Headache [Not Recovered/Not Resolved]
  - Rash macular [Not Recovered/Not Resolved]
  - Oropharyngeal pain [Not Recovered/Not Resolved]
  - Joint swelling [Not Recovered/Not Resolved]
  - Abdominal pain lower [Not Recovered/Not Resolved]
  - Proteinuria [Unknown]
  - Vocal cord inflammation [Not Recovered/Not Resolved]
  - Angina bullosa haemorrhagica [Recovered/Resolved]
  - Epistaxis [Unknown]

NARRATIVE: CASE EVENT DATE: 201511
